FAERS Safety Report 19810103 (Version 1)
Quarter: 2021Q3

REPORT INFORMATION
  Report Type: Spontaneous
  Country: FR (occurrence: FR)
  Receive Date: 20210909
  Receipt Date: 20210909
  Transmission Date: 20211014
  Serious: Yes (Death, Hospitalization, Other)
  Sender: FDA-Public Use
  Company Number: NVSC2021FR192520

PATIENT
  Age: 75 Year
  Sex: Male

DRUGS (41)
  1. VANCOMYCIN [Suspect]
     Active Substance: VANCOMYCIN
     Dosage: UNK
     Route: 065
     Dates: start: 201801, end: 201802
  2. MEROPENEM. [Suspect]
     Active Substance: MEROPENEM
     Indication: ENTEROBACTER INFECTION
     Dosage: UNK
     Route: 065
     Dates: start: 201804, end: 201805
  3. DAPTOMYCIN. [Suspect]
     Active Substance: DAPTOMYCIN
     Indication: PNEUMONIA
     Dosage: UNK
     Route: 065
     Dates: start: 201803, end: 201803
  4. AMIKACIN. [Suspect]
     Active Substance: AMIKACIN
     Indication: PNEUMONIA
     Dosage: UNK
     Route: 065
     Dates: start: 2018, end: 2018
  5. CEFTAZIDIME. [Suspect]
     Active Substance: CEFTAZIDIME
     Indication: PERITONITIS
  6. PIPERACILLIN SODIUM,TAZOBACTAM SODIUM [Suspect]
     Active Substance: PIPERACILLIN SODIUM\TAZOBACTAM SODIUM
     Indication: STAPHYLOCOCCAL INFECTION
  7. MEROPENEM. [Suspect]
     Active Substance: MEROPENEM
     Indication: BACTERAEMIA
     Dosage: UNK
     Route: 065
     Dates: start: 2018, end: 2018
  8. ERYTHROMYCIN. [Suspect]
     Active Substance: ERYTHROMYCIN
     Indication: BACTERAEMIA
     Dosage: UNK
     Route: 065
     Dates: start: 2018, end: 2018
  9. ERYTHROMYCIN. [Suspect]
     Active Substance: ERYTHROMYCIN
     Dosage: UNK
     Route: 065
     Dates: start: 201805, end: 201805
  10. COTRIMOXAZOLE [Suspect]
     Active Substance: SULFAMETHOXAZOLE\TRIMETHOPRIM
     Indication: BACTERAEMIA
     Dosage: UNK
     Route: 065
     Dates: start: 2018, end: 2018
  11. DAPTOMYCIN. [Suspect]
     Active Substance: DAPTOMYCIN
     Indication: BACTERAEMIA
     Dosage: UNK
     Route: 065
     Dates: start: 2018, end: 2018
  12. AMIKACIN. [Suspect]
     Active Substance: AMIKACIN
     Indication: BACTERAEMIA
     Dosage: UNK
     Route: 065
     Dates: start: 201802, end: 201802
  13. AMIKACIN. [Suspect]
     Active Substance: AMIKACIN
     Indication: STAPHYLOCOCCAL INFECTION
     Dosage: UNK
     Route: 065
     Dates: start: 201804, end: 201804
  14. AMIKACIN. [Suspect]
     Active Substance: AMIKACIN
     Indication: ENTEROBACTER INFECTION
  15. VANCOMYCIN [Suspect]
     Active Substance: VANCOMYCIN
     Indication: BACTERAEMIA
     Dosage: UNK
     Route: 065
     Dates: start: 2018, end: 2018
  16. LEVOFLOXACIN. [Suspect]
     Active Substance: LEVOFLOXACIN
     Indication: BACTERAEMIA
     Dosage: UNK
     Route: 065
     Dates: start: 201803, end: 201803
  17. MEROPENEM. [Suspect]
     Active Substance: MEROPENEM
     Indication: PERITONITIS
     Dosage: UNK
     Route: 065
     Dates: start: 201803, end: 201804
  18. MEROPENEM. [Suspect]
     Active Substance: MEROPENEM
     Indication: PNEUMONIA
     Dosage: UNK
     Route: 065
     Dates: start: 201803, end: 201803
  19. MEROPENEM. [Suspect]
     Active Substance: MEROPENEM
     Indication: STAPHYLOCOCCAL INFECTION
  20. DAPTOMYCIN. [Suspect]
     Active Substance: DAPTOMYCIN
     Dosage: UNK
     Route: 065
     Dates: start: 201804, end: 201804
  21. IMIPENEM AND CILASTATIN SODIUM [Suspect]
     Active Substance: CILASTATIN SODIUM\IMIPENEM
     Indication: BACTERAEMIA
     Dosage: UNK
     Route: 065
     Dates: start: 201802, end: 201802
  22. CEFTAZIDIME. [Suspect]
     Active Substance: CEFTAZIDIME
     Indication: BACTERAEMIA
     Dosage: UNK
     Route: 065
     Dates: start: 201805, end: 201805
  23. ERYTHROMYCIN. [Suspect]
     Active Substance: ERYTHROMYCIN
     Indication: PERITONITIS
     Dosage: UNK
     Route: 065
     Dates: start: 201802, end: 201802
  24. CEFTAROLINE [Suspect]
     Active Substance: CEFTAROLINE
     Indication: BACTERAEMIA
     Dosage: UNK
     Route: 065
     Dates: start: 201803, end: 201803
  25. AVIBACTAM [Suspect]
     Active Substance: AVIBACTAM
     Indication: STAPHYLOCOCCAL INFECTION
  26. PIPERACILLIN SODIUM,TAZOBACTAM SODIUM [Suspect]
     Active Substance: PIPERACILLIN SODIUM\TAZOBACTAM SODIUM
     Indication: BACTERAEMIA
     Dosage: UNK
     Route: 065
     Dates: start: 201802, end: 201802
  27. VANCOMYCIN [Suspect]
     Active Substance: VANCOMYCIN
     Dosage: UNK
     Route: 065
     Dates: start: 201803, end: 201803
  28. LINEZOLID. [Suspect]
     Active Substance: LINEZOLID
     Indication: BACTERAEMIA
     Dosage: UNK
     Route: 065
     Dates: start: 2018, end: 2018
  29. CEFTAZIDIME. [Suspect]
     Active Substance: CEFTAZIDIME
     Indication: ENTEROBACTER INFECTION
  30. AVIBACTAM [Suspect]
     Active Substance: AVIBACTAM
     Indication: ENTEROBACTER INFECTION
  31. LINEZOLID. [Suspect]
     Active Substance: LINEZOLID
     Dosage: UNK
     Route: 065
     Dates: start: 201805, end: 201805
  32. AMIKACIN. [Suspect]
     Active Substance: AMIKACIN
     Indication: PERITONITIS
     Dosage: UNK
     Route: 065
     Dates: start: 201803, end: 201803
  33. IMIPENEM AND CILASTATIN SODIUM [Suspect]
     Active Substance: CILASTATIN SODIUM\IMIPENEM
     Indication: STAPHYLOCOCCAL INFECTION
  34. CEFTAZIDIME. [Suspect]
     Active Substance: CEFTAZIDIME
     Indication: STAPHYLOCOCCAL INFECTION
  35. PIPERACILLIN SODIUM,TAZOBACTAM SODIUM [Suspect]
     Active Substance: PIPERACILLIN SODIUM\TAZOBACTAM SODIUM
     Indication: ENTEROBACTER INFECTION
  36. LINEZOLID. [Suspect]
     Active Substance: LINEZOLID
     Indication: PERITONITIS
     Dosage: UNK
     Route: 065
     Dates: start: 201802, end: 201802
  37. LINEZOLID. [Suspect]
     Active Substance: LINEZOLID
     Indication: PNEUMONIA
     Dosage: UNK
     Route: 065
     Dates: start: 201804, end: 201804
  38. COTRIMOXAZOLE [Suspect]
     Active Substance: SULFAMETHOXAZOLE\TRIMETHOPRIM
     Dosage: UNK
     Route: 065
     Dates: start: 201803, end: 201804
  39. IMIPENEM AND CILASTATIN SODIUM [Suspect]
     Active Substance: CILASTATIN SODIUM\IMIPENEM
     Indication: ENTEROBACTER INFECTION
  40. AVIBACTAM [Suspect]
     Active Substance: AVIBACTAM
     Indication: BACTERAEMIA
     Dosage: UNK
     Route: 065
     Dates: start: 201805, end: 201805
  41. AVIBACTAM [Suspect]
     Active Substance: AVIBACTAM
     Indication: PERITONITIS

REACTIONS (2)
  - Treatment failure [Fatal]
  - Pathogen resistance [Unknown]

NARRATIVE: CASE EVENT DATE: 2018
